FAERS Safety Report 9841313 (Version 1)
Quarter: 2014Q1

REPORT INFORMATION
  Report Type: Spontaneous
  Country: US (occurrence: US)
  Receive Date: 20140124
  Receipt Date: 20140124
  Transmission Date: 20141002
  Serious: No
  Sender: FDA-Public Use
  Company Number: US-009507513-1401USA004169

PATIENT
  Age: 39 Year
  Sex: Female

DRUGS (1)
  1. CLARITIN-D-24 [Suspect]
     Indication: PRODUCT USED FOR UNKNOWN INDICATION
     Dosage: 10 MG, ONCE
     Route: 048

REACTIONS (4)
  - Nausea [Unknown]
  - Dizziness [Unknown]
  - Rhinorrhoea [Unknown]
  - Gait disturbance [Unknown]
